FAERS Safety Report 5763800-1 (Version None)
Quarter: 2008Q2

REPORT INFORMATION
  Report Type: 
  Country: None (occurrence: None)
  Receive Date: 20080606
  Receipt Date: 20080606
  Transmission Date: 20081010
  Serious: Yes (Other)
  Sender: FDA-Public Use
  Company Number: None

PATIENT
  Sex: Male
  Weight: 88.63 kg

DRUGS (1)
  1. ANTI-THYMOCYTE GLOBULIN NOS [Suspect]
     Indication: HODGKIN'S DISEASE

REACTIONS (2)
  - DRUG ERUPTION [None]
  - RASH [None]
